FAERS Safety Report 6998490-3 (Version None)
Quarter: 2010Q3

REPORT INFORMATION
  Report Type: 
  Country: None (occurrence: None)
  Receive Date: 20100920
  Receipt Date: 20080319
  Transmission Date: 20110219
  Serious: Yes (Hospitalization, Other)
  Sender: FDA-Public Use
  Company Number: US-ASTRAZENECA-2007UW16991

PATIENT
  Age: 63 Year
  Sex: Female
  Weight: 88.5 kg

DRUGS (18)
  1. SEROQUEL [Suspect]
     Indication: BIPOLAR DISORDER
     Route: 048
     Dates: start: 20010520, end: 20060530
  2. SEROQUEL [Suspect]
     Indication: DEPRESSION
     Route: 048
     Dates: start: 20010520, end: 20060530
  3. SEROQUEL [Suspect]
     Indication: INSOMNIA
     Route: 048
     Dates: start: 20010520, end: 20060530
  4. SEROQUEL [Suspect]
     Dosage: 100-400 MG DAILY
     Route: 048
     Dates: start: 20030729
  5. SEROQUEL [Suspect]
     Dosage: 100-400 MG DAILY
     Route: 048
     Dates: start: 20030729
  6. SEROQUEL [Suspect]
     Dosage: 100-400 MG DAILY
     Route: 048
     Dates: start: 20030729
  7. ABILIFY [Concomitant]
     Route: 048
     Dates: start: 20020101
  8. ZOLOFT [Concomitant]
     Route: 048
     Dates: start: 20020101
  9. ATIVAN [Concomitant]
     Route: 048
  10. ATIVAN [Concomitant]
     Route: 048
  11. PLAVIX [Concomitant]
     Route: 048
     Dates: start: 20060801
  12. LASIX [Concomitant]
     Route: 048
     Dates: start: 20060801
  13. VYTORIN [Concomitant]
     Dosage: 10/40 AT BED TIME
     Dates: start: 20060801
  14. NITROGLYCERIN [Concomitant]
     Indication: CHEST PAIN
     Dosage: AS AN WHEN REQUIRED
     Route: 060
     Dates: start: 20060801
  15. PROTONIX [Concomitant]
     Dates: start: 20060801
  16. LEVOXYL [Concomitant]
     Dates: start: 20060801
  17. RISPERDAL [Concomitant]
     Dates: start: 20060801
  18. LOPRESSOR [Concomitant]
     Dosage: ONE TABLET DAILY
     Dates: start: 20060801

REACTIONS (6)
  - CEREBROVASCULAR ACCIDENT [None]
  - DEPRESSION [None]
  - DIABETES MELLITUS [None]
  - DIABETES MELLITUS MALNUTRITION-RELATED [None]
  - OBESITY [None]
  - TYPE 2 DIABETES MELLITUS [None]
